FAERS Safety Report 11498801 (Version 1)
Quarter: 2015Q3

REPORT INFORMATION
  Report Type: Spontaneous
  Country: US (occurrence: US)
  Receive Date: 20150912
  Receipt Date: 20150912
  Transmission Date: 20151125
  Serious: Yes (Other)
  Sender: FDA-Public Use
  Company Number: US-CIPLA LTD.-2015US07166

PATIENT

DRUGS (5)
  1. DASABUVIR [Suspect]
     Active Substance: DASABUVIR
     Indication: HEPATITIS C VIRUS TEST POSITIVE
     Dosage: 400 MG, BID
     Route: 065
  2. PARITAPREVIR [Suspect]
     Active Substance: PARITAPREVIR
     Indication: HEPATITIS C VIRUS TEST POSITIVE
     Dosage: 100 MG, QD
     Route: 065
  3. RITONAVIR. [Suspect]
     Active Substance: RITONAVIR
     Indication: HEPATITIS C VIRUS TEST POSITIVE
     Dosage: 100 MG, QD
     Route: 065
  4. RIBAVIRIN. [Suspect]
     Active Substance: RIBAVIRIN
     Indication: HEPATITIS C VIRUS TEST POSITIVE
     Dosage: 1000 MG OR 1200 MG, QD
     Route: 065
  5. OMBITASVIR [Suspect]
     Active Substance: OMBITASVIR
     Indication: HEPATITIS C VIRUS TEST POSITIVE
     Dosage: 25 MG, QD
     Route: 065

REACTIONS (1)
  - Disease recurrence [Unknown]
